FAERS Safety Report 21376511 (Version 1)
Quarter: 2022Q3

REPORT INFORMATION
  Report Type: Spontaneous
  Country: US (occurrence: US)
  Receive Date: 20220926
  Receipt Date: 20220926
  Transmission Date: 20221026
  Serious: Yes (Hospitalization)
  Sender: FDA-Public Use
  Company Number: US-TEVA-2022-US-2075131

PATIENT
  Age: 72 Year
  Sex: Female

DRUGS (1)
  1. CARBAMAZEPINE [Suspect]
     Active Substance: CARBAMAZEPINE
     Indication: Trigeminal neuralgia
     Dosage: 200 MILLIGRAM DAILY;
     Route: 065
     Dates: end: 20220908

REACTIONS (3)
  - Hospitalisation [Not Recovered/Not Resolved]
  - Nausea [Unknown]
  - Product storage error [Unknown]

NARRATIVE: CASE EVENT DATE: 20220912
